FAERS Safety Report 21925224 (Version 2)
Quarter: 2023Q1

REPORT INFORMATION
  Report Type: Spontaneous
  Country: CA (occurrence: CA)
  Receive Date: 20230130
  Receipt Date: 20230203
  Transmission Date: 20230418
  Serious: Yes (Life-Threatening, Hospitalization, Other)
  Sender: FDA-Public Use
  Company Number: ALC2023CA000664

PATIENT

DRUGS (346)
  1. PHENYLEPHRINE HYDROCHLORIDE [Suspect]
     Active Substance: PHENYLEPHRINE HYDROCHLORIDE
     Indication: Pain
     Dosage: UNK
     Route: 065
  2. ATROPINE SULFATE [Suspect]
     Active Substance: ATROPINE SULFATE
     Indication: Coronary artery disease
     Dosage: 6 MG
     Route: 065
  3. ATROPINE SULFATE [Suspect]
     Active Substance: ATROPINE SULFATE
     Indication: Chest pain
  4. ATROPINE SULFATE [Suspect]
     Active Substance: ATROPINE SULFATE
     Indication: Angina pectoris
  5. MORPHINE SULFATE [Suspect]
     Active Substance: MORPHINE SULFATE
     Indication: Pain
     Dosage: 10 MG, QD
     Route: 030
  6. MORPHINE SULFATE [Suspect]
     Active Substance: MORPHINE SULFATE
     Indication: Fibromyalgia
     Dosage: 10 MG QD
     Route: 065
  7. MORPHINE SULFATE [Suspect]
     Active Substance: MORPHINE SULFATE
     Indication: Chest pain
     Dosage: 100 MG QD
     Route: 065
  8. MORPHINE SULFATE [Suspect]
     Active Substance: MORPHINE SULFATE
     Dosage: 20 MG QD
     Route: 030
  9. MORPHINE SULFATE [Suspect]
     Active Substance: MORPHINE SULFATE
     Dosage: 2 DOSAGE FORM, QD
     Route: 065
  10. MORPHINE [Suspect]
     Active Substance: MORPHINE
     Indication: Pain
     Dosage: UNK
     Route: 065
  11. ROSUVASTATIN CALCIUM [Suspect]
     Active Substance: ROSUVASTATIN CALCIUM
     Indication: Chronic obstructive pulmonary disease
     Dosage: UNK
     Route: 048
  12. ROSUVASTATIN CALCIUM [Suspect]
     Active Substance: ROSUVASTATIN CALCIUM
     Indication: Chest pain
     Dosage: UNK
     Route: 065
  13. ROSUVASTATIN CALCIUM [Suspect]
     Active Substance: ROSUVASTATIN CALCIUM
     Indication: Cerebrovascular accident
     Dosage: 20 MG, BID
     Route: 048
  14. ROSUVASTATIN CALCIUM [Suspect]
     Active Substance: ROSUVASTATIN CALCIUM
     Indication: Angina pectoris
     Dosage: 10 MG BID
     Route: 048
  15. ROSUVASTATIN CALCIUM [Suspect]
     Active Substance: ROSUVASTATIN CALCIUM
     Dosage: 40 MG
     Route: 065
  16. ROSUVASTATIN CALCIUM [Suspect]
     Active Substance: ROSUVASTATIN CALCIUM
     Dosage: 200 MG, BID
     Route: 048
  17. ROSUVASTATIN CALCIUM [Suspect]
     Active Substance: ROSUVASTATIN CALCIUM
     Dosage: 40 MG QD
     Route: 048
  18. ROSUVASTATIN CALCIUM [Suspect]
     Active Substance: ROSUVASTATIN CALCIUM
     Dosage: 20 MG, Q12H
     Route: 065
  19. ROSUVASTATIN CALCIUM [Suspect]
     Active Substance: ROSUVASTATIN CALCIUM
     Dosage: 20 MG, QD
     Route: 065
  20. ROSUVASTATIN CALCIUM [Suspect]
     Active Substance: ROSUVASTATIN CALCIUM
     Dosage: 200 MG QD
     Route: 065
  21. DOCUSATE SODIUM [Suspect]
     Active Substance: DOCUSATE SODIUM
     Indication: Constipation
     Dosage: UNK
     Route: 065
  22. NITROGLYCERIN [Suspect]
     Active Substance: NITROGLYCERIN
     Indication: Coronary artery disease
     Dosage: 0.4 MG, QD
     Route: 065
  23. NITROGLYCERIN [Suspect]
     Active Substance: NITROGLYCERIN
     Indication: Chest pain
     Dosage: 0.6 MG
     Route: 061
  24. NITROGLYCERIN [Suspect]
     Active Substance: NITROGLYCERIN
     Indication: Angina pectoris
     Dosage: UNK
     Route: 065
  25. NITROGLYCERIN [Suspect]
     Active Substance: NITROGLYCERIN
     Dosage: 0.4 MG
     Route: 065
  26. NITROGLYCERIN [Suspect]
     Active Substance: NITROGLYCERIN
     Dosage: UNK
     Route: 065
  27. NITROGLYCERIN [Suspect]
     Active Substance: NITROGLYCERIN
     Dosage: 0.4 MG, PRN
     Route: 065
  28. NITROGLYCERIN [Suspect]
     Active Substance: NITROGLYCERIN
     Dosage: 0.6 MG, QD
     Route: 061
  29. NITROGLYCERIN [Suspect]
     Active Substance: NITROGLYCERIN
     Dosage: 1 DOSAGE FORM, QD
     Route: 065
  30. NITROGLYCERIN [Suspect]
     Active Substance: NITROGLYCERIN
     Dosage: 0.6 MG
     Route: 065
  31. NITROGLYCERIN [Suspect]
     Active Substance: NITROGLYCERIN
     Dosage: 6 MG
     Route: 061
  32. NITROGLYCERIN [Suspect]
     Active Substance: NITROGLYCERIN
     Dosage: 4 MG
     Route: 061
  33. NITROGLYCERIN [Suspect]
     Active Substance: NITROGLYCERIN
     Dosage: 4 MG
     Route: 065
  34. OMEPRAZOLE [Suspect]
     Active Substance: OMEPRAZOLE
     Indication: Duodenal ulcer
     Dosage: 20 MG, QD
     Route: 048
  35. OMEPRAZOLE [Suspect]
     Active Substance: OMEPRAZOLE
     Indication: Small intestine carcinoma
     Dosage: UNK
     Route: 065
  36. OMEPRAZOLE [Suspect]
     Active Substance: OMEPRAZOLE
     Indication: Hypertension
     Dosage: 20 MG, BID
     Route: 048
  37. OMEPRAZOLE [Suspect]
     Active Substance: OMEPRAZOLE
     Indication: Coronary artery disease
     Dosage: UNK
     Route: 048
  38. OMEPRAZOLE [Suspect]
     Active Substance: OMEPRAZOLE
     Indication: Angina pectoris
     Dosage: 20 MG
     Route: 065
  39. OMEPRAZOLE [Suspect]
     Active Substance: OMEPRAZOLE
     Indication: Chest pain
  40. ROSUVASTATIN [Suspect]
     Active Substance: ROSUVASTATIN
     Indication: Insomnia
     Dosage: 200 MG, BID
     Route: 048
  41. ROSUVASTATIN [Suspect]
     Active Substance: ROSUVASTATIN
     Indication: Hypertension
     Dosage: 20 MG, BID
     Route: 048
  42. ROSUVASTATIN [Suspect]
     Active Substance: ROSUVASTATIN
     Indication: Coronary artery disease
     Dosage: 20 MG, BID
     Route: 048
  43. ROSUVASTATIN [Suspect]
     Active Substance: ROSUVASTATIN
     Indication: Chronic obstructive pulmonary disease
     Dosage: 40 MG, QD
     Route: 048
  44. ROSUVASTATIN [Suspect]
     Active Substance: ROSUVASTATIN
     Indication: Chest pain
     Dosage: 20 MG, BID
     Route: 048
  45. ROSUVASTATIN [Suspect]
     Active Substance: ROSUVASTATIN
     Indication: Cerebrovascular accident
     Dosage: 20 MG, BID
     Route: 048
  46. ROSUVASTATIN [Suspect]
     Active Substance: ROSUVASTATIN
     Indication: Angina pectoris
     Dosage: 20 MG, BID
     Route: 048
  47. ROSUVASTATIN [Suspect]
     Active Substance: ROSUVASTATIN
     Dosage: 200 MG, BID
     Route: 065
  48. ROSUVASTATIN [Suspect]
     Active Substance: ROSUVASTATIN
     Dosage: 20 MG, BID
     Route: 065
  49. ROSUVASTATIN [Suspect]
     Active Substance: ROSUVASTATIN
     Dosage: 1.667 MG
     Route: 048
  50. ROSUVASTATIN [Suspect]
     Active Substance: ROSUVASTATIN
     Dosage: UNK
     Route: 058
  51. ALBUTEROL [Suspect]
     Active Substance: ALBUTEROL
     Indication: Hypertension
     Dosage: 100 UG, QD
  52. ALBUTEROL [Suspect]
     Active Substance: ALBUTEROL
     Indication: Chest pain
     Dosage: 400 UG, QD
     Route: 065
  53. ALBUTEROL [Suspect]
     Active Substance: ALBUTEROL
     Indication: Angina pectoris
     Dosage: 200 UG, QD
     Route: 065
  54. ALBUTEROL [Suspect]
     Active Substance: ALBUTEROL
     Indication: Coronary artery disease
     Dosage: UNK
     Route: 065
  55. ALBUTEROL [Suspect]
     Active Substance: ALBUTEROL
     Indication: Chronic obstructive pulmonary disease
     Dosage: 400 MG, QD
     Route: 065
  56. ALBUTEROL [Suspect]
     Active Substance: ALBUTEROL
     Dosage: 100 MG, QD
     Route: 065
  57. ALBUTEROL [Suspect]
     Active Substance: ALBUTEROL
     Dosage: 400 MG
     Route: 065
  58. ALBUTEROL [Suspect]
     Active Substance: ALBUTEROL
     Dosage: 200 MG, Q6H
     Route: 065
  59. ALBUTEROL [Suspect]
     Active Substance: ALBUTEROL
     Dosage: 400 UG
     Route: 065
  60. ALBUTEROL [Suspect]
     Active Substance: ALBUTEROL
     Dosage: 800 MG
     Route: 065
  61. ALBUTEROL [Suspect]
     Active Substance: ALBUTEROL
     Dosage: 200 UG
     Route: 065
  62. ALBUTEROL [Suspect]
     Active Substance: ALBUTEROL
     Dosage: 360 MG
     Route: 065
  63. AMLODIPINE BESYLATE [Suspect]
     Active Substance: AMLODIPINE BESYLATE
     Indication: Hypertension
     Dosage: 50 MG, QD
     Route: 065
  64. AMLODIPINE BESYLATE [Suspect]
     Active Substance: AMLODIPINE BESYLATE
     Indication: Coronary artery disease
     Dosage: 5 MG, QD
     Route: 065
  65. AMLODIPINE BESYLATE [Suspect]
     Active Substance: AMLODIPINE BESYLATE
     Indication: Angina pectoris
     Dosage: 5 MG, QD
     Route: 065
  66. AMLODIPINE BESYLATE [Suspect]
     Active Substance: AMLODIPINE BESYLATE
     Dosage: 5 MG
     Route: 065
  67. AMLODIPINE BESYLATE [Suspect]
     Active Substance: AMLODIPINE BESYLATE
     Dosage: UNK
     Route: 065
  68. AMLODIPINE BESYLATE [Suspect]
     Active Substance: AMLODIPINE BESYLATE
     Dosage: UNK
     Route: 065
  69. AMLODIPINE BESYLATE [Suspect]
     Active Substance: AMLODIPINE BESYLATE
     Dosage: 5 MG, QD
     Route: 065
  70. DILTIAZEM [Suspect]
     Active Substance: DILTIAZEM
     Indication: Hypertension
     Dosage: 360 MG, QD
     Route: 065
  71. DILTIAZEM [Suspect]
     Active Substance: DILTIAZEM
     Indication: Chest pain
     Dosage: 75 MG, QD
     Route: 065
  72. DILTIAZEM [Suspect]
     Active Substance: DILTIAZEM
     Indication: Coronary artery disease
     Dosage: UNK
     Route: 065
  73. DILTIAZEM [Suspect]
     Active Substance: DILTIAZEM
     Indication: Angina pectoris
  74. DILTIAZEM HYDROCHLORIDE [Suspect]
     Active Substance: DILTIAZEM HYDROCHLORIDE
     Indication: Coronary artery disease
     Dosage: 360 MG, QD
     Route: 065
  75. DILTIAZEM HYDROCHLORIDE [Suspect]
     Active Substance: DILTIAZEM HYDROCHLORIDE
     Indication: Chest pain
     Dosage: UNK
     Route: 065
  76. DILTIAZEM HYDROCHLORIDE [Suspect]
     Active Substance: DILTIAZEM HYDROCHLORIDE
     Indication: Angina pectoris
     Dosage: 36 MG
     Route: 065
  77. DILTIAZEM HYDROCHLORIDE [Suspect]
     Active Substance: DILTIAZEM HYDROCHLORIDE
     Indication: Hypertension
     Dosage: 15 MG
     Route: 065
  78. DILTIAZEM HYDROCHLORIDE [Suspect]
     Active Substance: DILTIAZEM HYDROCHLORIDE
     Dosage: 360 MG
     Route: 065
  79. DILTIAZEM HYDROCHLORIDE [Suspect]
     Active Substance: DILTIAZEM HYDROCHLORIDE
     Dosage: 300 MG
     Route: 065
  80. DILTIAZEM HYDROCHLORIDE [Suspect]
     Active Substance: DILTIAZEM HYDROCHLORIDE
     Dosage: 0.4 MG
     Route: 065
  81. CARBAMAZEPINE [Suspect]
     Active Substance: CARBAMAZEPINE
     Indication: Seizure prophylaxis
     Dosage: 200 MG, BID
     Route: 065
  82. CARBAMAZEPINE [Suspect]
     Active Substance: CARBAMAZEPINE
     Indication: Seizure
     Dosage: 100 MG, BID
     Route: 065
  83. CARBAMAZEPINE [Suspect]
     Active Substance: CARBAMAZEPINE
     Indication: Fibromyalgia
     Dosage: 100 MG
     Route: 065
  84. CARBAMAZEPINE [Suspect]
     Active Substance: CARBAMAZEPINE
     Dosage: 2 DOSAGE FORM, QD
     Route: 065
  85. CARBAMAZEPINE [Suspect]
     Active Substance: CARBAMAZEPINE
     Dosage: 200 MG, BID
     Route: 065
  86. CARBAMAZEPINE [Suspect]
     Active Substance: CARBAMAZEPINE
     Dosage: 400 MG, Q12H
     Route: 065
  87. CARBAMAZEPINE [Suspect]
     Active Substance: CARBAMAZEPINE
     Dosage: 2 DOSAGE FORM
     Route: 065
  88. CARBAMAZEPINE [Suspect]
     Active Substance: CARBAMAZEPINE
     Dosage: 10 MG
     Route: 065
  89. CARBAMAZEPINE [Suspect]
     Active Substance: CARBAMAZEPINE
     Dosage: 100 MG, QD
     Route: 065
  90. CARBAMAZEPINE [Suspect]
     Active Substance: CARBAMAZEPINE
     Dosage: 200 MG, QD
     Route: 065
  91. CARBAMAZEPINE [Suspect]
     Active Substance: CARBAMAZEPINE
     Dosage: 500 MG, QD
     Route: 065
  92. LEVOFLOXACIN [Suspect]
     Active Substance: LEVOFLOXACIN
     Indication: Urinary tract infection
     Dosage: 250 MG, QD
     Route: 065
  93. LEVOFLOXACIN [Suspect]
     Active Substance: LEVOFLOXACIN
     Dosage: UNK
     Route: 065
  94. AMLODIPINE [Suspect]
     Active Substance: AMLODIPINE BESYLATE
     Indication: Hypertension
     Dosage: 5 MG, QD
     Route: 065
  95. AMLODIPINE [Suspect]
     Active Substance: AMLODIPINE BESYLATE
     Indication: Coronary artery disease
  96. AMLODIPINE [Suspect]
     Active Substance: AMLODIPINE BESYLATE
     Indication: Angina pectoris
  97. AMLODIPINE [Suspect]
     Active Substance: AMLODIPINE BESYLATE
     Indication: Chest pain
  98. GALANTAMINE [Suspect]
     Active Substance: GALANTAMINE
     Indication: Dementia
     Dosage: 16 MG, QD
     Route: 065
  99. DIAZEPAM [Suspect]
     Active Substance: DIAZEPAM
     Indication: Insomnia
     Dosage: UNK
     Route: 065
  100. DIAZEPAM [Suspect]
     Active Substance: DIAZEPAM
     Indication: Hypertension
  101. DIAZEPAM [Suspect]
     Active Substance: DIAZEPAM
     Indication: Coronary artery disease
  102. DIAZEPAM [Suspect]
     Active Substance: DIAZEPAM
     Indication: Angina pectoris
  103. ERGOCALCIFEROL [Suspect]
     Active Substance: ERGOCALCIFEROL
     Indication: Product used for unknown indication
     Dosage: UNK
     Route: 065
  104. PAPAVERINE [Suspect]
     Active Substance: PAPAVERINE
     Indication: Coronary artery disease
     Dosage: 6 MG
     Route: 065
  105. PAPAVERINE [Suspect]
     Active Substance: PAPAVERINE
     Indication: Chest pain
  106. PAPAVERINE [Suspect]
     Active Substance: PAPAVERINE
     Indication: Angina pectoris
  107. PHENOBARBITAL [Suspect]
     Active Substance: PHENOBARBITAL
     Indication: Coronary artery disease
     Dosage: 6 MG
     Route: 065
  108. PHENOBARBITAL [Suspect]
     Active Substance: PHENOBARBITAL
     Indication: Chest pain
  109. PHENOBARBITAL [Suspect]
     Active Substance: PHENOBARBITAL
     Indication: Angina pectoris
  110. LACTULOSE [Suspect]
     Active Substance: LACTULOSE
     Indication: Constipation
     Dosage: 15 ML, PRN (LIQUID ORAL)
     Route: 048
  111. LACTULOSE [Suspect]
     Active Substance: LACTULOSE
     Indication: Urinary tract infection
     Dosage: UNK (LIQUID ORAL);
     Route: 048
  112. LACTULOSE [Suspect]
     Active Substance: LACTULOSE
     Indication: Thyroid disorder
     Dosage: UNK
     Route: 065
  113. LACTULOSE [Suspect]
     Active Substance: LACTULOSE
     Indication: Radioactive iodine therapy
     Dosage: 15 ML
     Route: 048
  114. LACTULOSE [Suspect]
     Active Substance: LACTULOSE
     Dosage: 15 ML
     Route: 048
  115. GLUCOSAMINE HYDROCHLORIDE [Suspect]
     Active Substance: GLUCOSAMINE HYDROCHLORIDE
     Indication: Pain
     Dosage: 250 MG, BID
     Route: 065
  116. GLUCOSAMINE HYDROCHLORIDE [Suspect]
     Active Substance: GLUCOSAMINE HYDROCHLORIDE
     Indication: Arthritis
     Dosage: 500 MG, BID
     Route: 065
  117. LEVOTHYROXINE [Suspect]
     Active Substance: LEVOTHYROXINE
     Indication: Radioactive iodine therapy
     Dosage: 0.88 MG, QD
     Route: 065
  118. LEVOTHYROXINE [Suspect]
     Active Substance: LEVOTHYROXINE
     Indication: Thyroid disorder
  119. MAGNESIUM HYDROXIDE [Suspect]
     Active Substance: MAGNESIUM HYDROXIDE
     Indication: Constipation
     Dosage: 622 MG, BID
     Route: 065
  120. MAGNESIUM HYDROXIDE [Suspect]
     Active Substance: MAGNESIUM HYDROXIDE
     Dosage: 311 MG, BID
     Route: 065
  121. MAGNESIUM HYDROXIDE [Suspect]
     Active Substance: MAGNESIUM HYDROXIDE
     Dosage: UNK
     Route: 065
  122. MAGNESIUM HYDROXIDE [Suspect]
     Active Substance: MAGNESIUM HYDROXIDE
     Dosage: 622 MG
     Route: 065
  123. MAGNESIUM HYDROXIDE [Suspect]
     Active Substance: MAGNESIUM HYDROXIDE
     Dosage: 1244 MG
     Route: 065
  124. MAGNESIUM HYDROXIDE [Suspect]
     Active Substance: MAGNESIUM HYDROXIDE
     Dosage: 1 DOSAGE FORM
     Route: 065
  125. MAGNESIUM HYDROXIDE [Suspect]
     Active Substance: MAGNESIUM HYDROXIDE
     Dosage: 311 MG
     Route: 065
  126. MAGNESIUM HYDROXIDE [Suspect]
     Active Substance: MAGNESIUM HYDROXIDE
     Dosage: 2 DOSAGE FORM
     Route: 065
  127. MAGNESIUM HYDROXIDE [Suspect]
     Active Substance: MAGNESIUM HYDROXIDE
     Dosage: 1240 MG
     Route: 065
  128. FUROSEMIDE [Suspect]
     Active Substance: FUROSEMIDE
     Indication: Oedema
     Dosage: 40 MG, QD
     Route: 065
  129. FUROSEMIDE [Suspect]
     Active Substance: FUROSEMIDE
     Indication: Coronary artery disease
     Dosage: 10 MG, QD
     Route: 065
  130. FUROSEMIDE [Suspect]
     Active Substance: FUROSEMIDE
     Indication: Chest pain
     Dosage: 40 MG, QD
     Route: 065
  131. FUROSEMIDE [Suspect]
     Active Substance: FUROSEMIDE
     Indication: Angina pectoris
     Dosage: 20 MG, QD
     Route: 065
  132. FUROSEMIDE [Suspect]
     Active Substance: FUROSEMIDE
     Dosage: 10 MG
     Route: 065
  133. FUROSEMIDE [Suspect]
     Active Substance: FUROSEMIDE
     Dosage: 20 MG
     Route: 065
  134. FUROSEMIDE [Suspect]
     Active Substance: FUROSEMIDE
     Dosage: 4 MG, QD
     Route: 065
  135. OXAZEPAM [Suspect]
     Active Substance: OXAZEPAM
     Indication: Insomnia
     Dosage: 15 MG, QD
     Route: 048
  136. OXAZEPAM [Suspect]
     Active Substance: OXAZEPAM
     Indication: Hypertension
     Dosage: 40 MG, QD
     Route: 048
  137. OXAZEPAM [Suspect]
     Active Substance: OXAZEPAM
     Indication: Coronary artery disease
     Dosage: 15 MG
     Route: 065
  138. OXAZEPAM [Suspect]
     Active Substance: OXAZEPAM
     Indication: Cerebrovascular accident
     Dosage: UNK
     Route: 048
  139. OXAZEPAM [Suspect]
     Active Substance: OXAZEPAM
     Indication: Angina pectoris
     Dosage: UNK
     Route: 065
  140. OXAZEPAM [Suspect]
     Active Substance: OXAZEPAM
     Indication: Duodenal ulcer
  141. DIPYRIDAMOLE [Suspect]
     Active Substance: DIPYRIDAMOLE
     Indication: Cerebrovascular accident
     Dosage: 0.5 DOSAGE FORM, Q48H
     Route: 065
  142. DIPYRIDAMOLE [Suspect]
     Active Substance: DIPYRIDAMOLE
     Dosage: 1 DOSAGE FORM, BID
     Route: 065
  143. DIPYRIDAMOLE [Suspect]
     Active Substance: DIPYRIDAMOLE
     Dosage: 2 DOSAGE FORM, QD
     Route: 065
  144. DIPYRIDAMOLE [Suspect]
     Active Substance: DIPYRIDAMOLE
     Dosage: UNK, QD
     Route: 065
  145. DIPYRIDAMOLE [Suspect]
     Active Substance: DIPYRIDAMOLE
     Dosage: UNK, Q12H
     Route: 065
  146. DIPYRIDAMOLE [Suspect]
     Active Substance: DIPYRIDAMOLE
     Dosage: 5 MG, Q12H
     Route: 065
  147. DIPYRIDAMOLE [Suspect]
     Active Substance: DIPYRIDAMOLE
     Dosage: (1 EVERY 5 DAYS)
     Route: 065
  148. ASPIRIN [Suspect]
     Active Substance: ASPIRIN
     Indication: Hypertension
     Dosage: UNK
     Route: 065
  149. ASPIRIN [Suspect]
     Active Substance: ASPIRIN
     Indication: Coronary artery disease
     Dosage: UNK
     Route: 065
  150. ASPIRIN [Suspect]
     Active Substance: ASPIRIN
     Indication: Angina pectoris
     Dosage: UNK
     Route: 065
  151. ASPIRIN [Suspect]
     Active Substance: ASPIRIN
     Dosage: UNK
     Route: 048
  152. ACETAMINOPHEN\CAFFEINE [Suspect]
     Active Substance: ACETAMINOPHEN\CAFFEINE
     Indication: Radioactive iodine therapy
     Dosage: UNK
     Route: 065
  153. ACETAMINOPHEN\CAFFEINE [Suspect]
     Active Substance: ACETAMINOPHEN\CAFFEINE
     Indication: Hypertension
     Dosage: UNK
     Route: 065
  154. ACETAMINOPHEN\CAFFEINE [Suspect]
     Active Substance: ACETAMINOPHEN\CAFFEINE
     Indication: Coronary artery disease
     Dosage: UNK
     Route: 065
  155. ACETAMINOPHEN\CAFFEINE [Suspect]
     Active Substance: ACETAMINOPHEN\CAFFEINE
     Indication: Chronic obstructive pulmonary disease
     Dosage: 50 MG, QD
     Route: 065
  156. ACETAMINOPHEN\CAFFEINE [Suspect]
     Active Substance: ACETAMINOPHEN\CAFFEINE
     Indication: Chest pain
     Dosage: 650 MG, QD
     Route: 065
  157. ACETAMINOPHEN\CAFFEINE [Suspect]
     Active Substance: ACETAMINOPHEN\CAFFEINE
     Indication: Cerebrovascular accident
     Dosage: 60 MG, QD
     Route: 065
  158. ACETAMINOPHEN\CAFFEINE [Suspect]
     Active Substance: ACETAMINOPHEN\CAFFEINE
     Indication: Angina pectoris
     Dosage: UNK
     Route: 065
  159. ACETAMINOPHEN\CAFFEINE [Suspect]
     Active Substance: ACETAMINOPHEN\CAFFEINE
     Indication: Pain
  160. ACETAMINOPHEN [Suspect]
     Active Substance: ACETAMINOPHEN
     Indication: Pain
     Dosage: 50 MG
     Route: 065
  161. ACETAMINOPHEN [Suspect]
     Active Substance: ACETAMINOPHEN
     Indication: Fibromyalgia
     Dosage: 650 MG
     Route: 065
  162. ACETAMINOPHEN [Suspect]
     Active Substance: ACETAMINOPHEN
     Indication: Radioactive iodine therapy
     Dosage: 650 MG, QD
     Route: 065
  163. ACETAMINOPHEN [Suspect]
     Active Substance: ACETAMINOPHEN
     Indication: Hypertension
     Dosage: 650 MG
     Route: 065
  164. ACETAMINOPHEN [Suspect]
     Active Substance: ACETAMINOPHEN
     Indication: Coronary artery disease
     Dosage: 650 MG, QD
     Route: 065
  165. ACETAMINOPHEN [Suspect]
     Active Substance: ACETAMINOPHEN
     Indication: Chronic obstructive pulmonary disease
     Dosage: 600 MG
     Route: 065
  166. ACETAMINOPHEN [Suspect]
     Active Substance: ACETAMINOPHEN
     Indication: Chest pain
     Dosage: 60 MG
     Route: 065
  167. ACETAMINOPHEN [Suspect]
     Active Substance: ACETAMINOPHEN
     Indication: Cerebrovascular accident
  168. ACETAMINOPHEN [Suspect]
     Active Substance: ACETAMINOPHEN
     Indication: Angina pectoris
  169. ACEBUTOLOL HYDROCHLORIDE [Suspect]
     Active Substance: ACEBUTOLOL HYDROCHLORIDE
     Indication: Hypertension
     Dosage: 100 MG, BID
     Route: 065
  170. ACEBUTOLOL HYDROCHLORIDE [Suspect]
     Active Substance: ACEBUTOLOL HYDROCHLORIDE
     Indication: Chest pain
     Dosage: 200 MG, BID
     Route: 065
  171. ACEBUTOLOL HYDROCHLORIDE [Suspect]
     Active Substance: ACEBUTOLOL HYDROCHLORIDE
     Indication: Coronary artery disease
     Dosage: 50 MG, BID
     Route: 065
  172. ACEBUTOLOL HYDROCHLORIDE [Suspect]
     Active Substance: ACEBUTOLOL HYDROCHLORIDE
     Indication: Constipation
     Dosage: 200 MG, BID
     Route: 065
  173. ACEBUTOLOL HYDROCHLORIDE [Suspect]
     Active Substance: ACEBUTOLOL HYDROCHLORIDE
     Indication: Angina pectoris
     Dosage: 200 MG, BID
     Route: 065
  174. ACEBUTOLOL HYDROCHLORIDE [Suspect]
     Active Substance: ACEBUTOLOL HYDROCHLORIDE
     Dosage: 100 MG, BID
     Route: 065
  175. ACEBUTOLOL HYDROCHLORIDE [Suspect]
     Active Substance: ACEBUTOLOL HYDROCHLORIDE
     Dosage: 50 MG, BID
     Route: 065
  176. ACEBUTOLOL HYDROCHLORIDE [Suspect]
     Active Substance: ACEBUTOLOL HYDROCHLORIDE
     Dosage: 100 MG, QD
     Route: 065
  177. ACEBUTOLOL HYDROCHLORIDE [Suspect]
     Active Substance: ACEBUTOLOL HYDROCHLORIDE
     Dosage: 100 MG, BID
     Route: 065
  178. ACEBUTOLOL HYDROCHLORIDE [Suspect]
     Active Substance: ACEBUTOLOL HYDROCHLORIDE
     Dosage: 400 MG, QD
     Route: 065
  179. ACEBUTOLOL HYDROCHLORIDE [Suspect]
     Active Substance: ACEBUTOLOL HYDROCHLORIDE
     Dosage: 400 MG, Q12H
     Route: 065
  180. ACEBUTOLOL HYDROCHLORIDE [Suspect]
     Active Substance: ACEBUTOLOL HYDROCHLORIDE
     Dosage: 400 MG, QW
     Route: 065
  181. ACEBUTOLOL HYDROCHLORIDE [Suspect]
     Active Substance: ACEBUTOLOL HYDROCHLORIDE
     Dosage: 500 MG, QD
     Route: 065
  182. AGGRENOX [Suspect]
     Active Substance: ASPIRIN\DIPYRIDAMOLE
     Indication: Cerebrovascular accident
     Dosage: DF, BID (CAPSULE, IMMEDIATE AND EXTENDED RELEASE) (2 DOSAGE FORM 1EVERY 1 DAY)
     Route: 065
  183. AGGRENOX [Suspect]
     Active Substance: ASPIRIN\DIPYRIDAMOLE
     Indication: Pain
     Dosage: 1 DOSAGE FORM, Q12H
     Route: 065
  184. AMITRIPTYLINE [Suspect]
     Active Substance: AMITRIPTYLINE
     Indication: Insomnia
     Dosage: 50 MG
     Route: 065
  185. AMITRIPTYLINE [Suspect]
     Active Substance: AMITRIPTYLINE
     Indication: Duodenal ulcer
     Dosage: 50 MG, QD
     Route: 065
  186. AMITRIPTYLINE [Suspect]
     Active Substance: AMITRIPTYLINE
     Indication: Arthritis
     Dosage: 50 MG, QD
     Route: 065
  187. AMITRIPTYLINE [Suspect]
     Active Substance: AMITRIPTYLINE
     Indication: Angina pectoris
     Dosage: 75 MG, QD
     Route: 065
  188. AMITRIPTYLINE [Suspect]
     Active Substance: AMITRIPTYLINE
     Dosage: 75 MG
     Route: 065
  189. AMITRIPTYLINE HYDROCHLORIDE [Suspect]
     Active Substance: AMITRIPTYLINE HYDROCHLORIDE
     Indication: Thyroid disorder
     Dosage: UNK
     Route: 065
  190. AMITRIPTYLINE HYDROCHLORIDE [Suspect]
     Active Substance: AMITRIPTYLINE HYDROCHLORIDE
     Indication: Radioactive iodine therapy
     Dosage: UNK
     Route: 065
  191. AMITRIPTYLINE HYDROCHLORIDE [Suspect]
     Active Substance: AMITRIPTYLINE HYDROCHLORIDE
     Indication: Prophylaxis
     Dosage: 75 MG, QD
     Route: 065
  192. AMITRIPTYLINE HYDROCHLORIDE [Suspect]
     Active Substance: AMITRIPTYLINE HYDROCHLORIDE
     Indication: Pain
     Dosage: UNK
     Route: 065
  193. AMITRIPTYLINE HYDROCHLORIDE [Suspect]
     Active Substance: AMITRIPTYLINE HYDROCHLORIDE
     Indication: Oedema
     Dosage: UNK
     Route: 065
  194. AMITRIPTYLINE HYDROCHLORIDE [Suspect]
     Active Substance: AMITRIPTYLINE HYDROCHLORIDE
     Indication: Insomnia
     Dosage: UNK
     Route: 065
  195. AMITRIPTYLINE HYDROCHLORIDE [Suspect]
     Active Substance: AMITRIPTYLINE HYDROCHLORIDE
     Indication: Hypertension
     Dosage: UNK
     Route: 065
  196. AMITRIPTYLINE HYDROCHLORIDE [Suspect]
     Active Substance: AMITRIPTYLINE HYDROCHLORIDE
     Indication: Fibromyalgia
     Dosage: UNK
     Route: 065
  197. AMITRIPTYLINE HYDROCHLORIDE [Suspect]
     Active Substance: AMITRIPTYLINE HYDROCHLORIDE
     Indication: Duodenal ulcer
     Dosage: UNK
     Route: 048
  198. AMITRIPTYLINE HYDROCHLORIDE [Suspect]
     Active Substance: AMITRIPTYLINE HYDROCHLORIDE
     Indication: Dementia
     Dosage: 50 MG, QD
     Route: 065
  199. AMITRIPTYLINE HYDROCHLORIDE [Suspect]
     Active Substance: AMITRIPTYLINE HYDROCHLORIDE
     Indication: Coronary artery disease
     Dosage: 50 MG
     Route: 065
  200. AMITRIPTYLINE HYDROCHLORIDE [Suspect]
     Active Substance: AMITRIPTYLINE HYDROCHLORIDE
     Indication: Constipation
     Dosage: 50 MG, QD
     Route: 065
  201. AMITRIPTYLINE HYDROCHLORIDE [Suspect]
     Active Substance: AMITRIPTYLINE HYDROCHLORIDE
     Indication: Chest pain
     Dosage: 75 MG, QD
     Route: 065
  202. AMITRIPTYLINE HYDROCHLORIDE [Suspect]
     Active Substance: AMITRIPTYLINE HYDROCHLORIDE
     Indication: Arthritis
     Dosage: UNK
     Route: 065
  203. AMITRIPTYLINE HYDROCHLORIDE [Suspect]
     Active Substance: AMITRIPTYLINE HYDROCHLORIDE
     Indication: Angina pectoris
     Dosage: UNK
     Route: 065
  204. AMLODIPINE MESYLATE [Suspect]
     Active Substance: AMLODIPINE MESYLATE
     Indication: Hypertension
     Dosage: UNK
     Route: 065
  205. AMLODIPINE MESYLATE [Suspect]
     Active Substance: AMLODIPINE MESYLATE
     Indication: Coronary artery disease
     Dosage: 5 MG, QD
     Route: 065
  206. AMLODIPINE MESYLATE [Suspect]
     Active Substance: AMLODIPINE MESYLATE
     Indication: Chest pain
  207. AMLODIPINE MESYLATE [Suspect]
     Active Substance: AMLODIPINE MESYLATE
     Indication: Angina pectoris
  208. CARBAMAZEPINE [Suspect]
     Active Substance: CARBAMAZEPINE
     Indication: Prophylaxis
     Dosage: 200 MG, BID
     Route: 065
  209. CARBAMAZEPINE [Suspect]
     Active Substance: CARBAMAZEPINE
     Indication: Fibromyalgia
     Dosage: 200 MG, BID, EXTENDED RELEASE
     Route: 065
  210. CARBAMAZEPINE [Suspect]
     Active Substance: CARBAMAZEPINE
     Indication: Seizure prophylaxis
     Dosage: 100 MG, Q12H
     Route: 065
  211. CARBAMAZEPINE [Suspect]
     Active Substance: CARBAMAZEPINE
     Dosage: 200 MG (1 EVERY 5 DAYS)
     Route: 065
  212. ASCORBIC ACID\CRANBERRY [Suspect]
     Active Substance: ASCORBIC ACID\CRANBERRY
     Indication: Bladder disorder
     Dosage: 500 MG, TID
     Route: 065
  213. CYCLOBENZAPRINE [Suspect]
     Active Substance: CYCLOBENZAPRINE
     Indication: Fibromyalgia
     Dosage: 5 MG, TID
     Route: 065
  214. CYCLOBENZAPRINE [Suspect]
     Active Substance: CYCLOBENZAPRINE
     Indication: Seizure prophylaxis
     Dosage: 5 MG, Q12H
     Route: 065
  215. CYCLOBENZAPRINE [Suspect]
     Active Substance: CYCLOBENZAPRINE
     Indication: Pain
     Dosage: 2 MG, QD
     Route: 065
  216. CYCLOBENZAPRINE [Suspect]
     Active Substance: CYCLOBENZAPRINE
     Dosage: 15 MG, Q8H
     Route: 065
  217. CYCLOBENZAPRINE [Suspect]
     Active Substance: CYCLOBENZAPRINE
     Dosage: 100 MG, Q12H
     Route: 065
  218. DILTIAZEM HYDROCHLORIDE [Suspect]
     Active Substance: DILTIAZEM HYDROCHLORIDE
     Indication: Hypertension
     Dosage: 360 MG, QD
     Route: 065
  219. DILTIAZEM HYDROCHLORIDE [Suspect]
     Active Substance: DILTIAZEM HYDROCHLORIDE
     Indication: Coronary artery disease
     Dosage: 500 MG, QD
     Route: 065
  220. DILTIAZEM HYDROCHLORIDE [Suspect]
     Active Substance: DILTIAZEM HYDROCHLORIDE
     Indication: Chest pain
     Dosage: UNK
     Route: 065
  221. DILTIAZEM HYDROCHLORIDE [Suspect]
     Active Substance: DILTIAZEM HYDROCHLORIDE
     Indication: Angina pectoris
     Dosage: UNK
     Route: 065
  222. OXAZEPAM [Suspect]
     Active Substance: OXAZEPAM
     Indication: Insomnia
     Dosage: 15 MG, QD
     Route: 065
  223. OXAZEPAM [Suspect]
     Active Substance: OXAZEPAM
     Indication: Hypertension
     Dosage: 20 MG
     Route: 065
  224. OXAZEPAM [Suspect]
     Active Substance: OXAZEPAM
     Indication: Duodenal ulcer
     Dosage: 40 MG
     Route: 065
  225. OXAZEPAM [Suspect]
     Active Substance: OXAZEPAM
     Indication: Coronary artery disease
  226. OXAZEPAM [Suspect]
     Active Substance: OXAZEPAM
     Indication: Angina pectoris
  227. BISACODYL [Suspect]
     Active Substance: BISACODYL
     Indication: Constipation
     Dosage: 2 DOSAGE FORM, PRN
     Route: 065
  228. BISACODYL [Suspect]
     Active Substance: BISACODYL
     Indication: Chronic obstructive pulmonary disease
     Dosage: 2 DOSAGE FORM, QD
     Route: 048
  229. BISACODYL [Suspect]
     Active Substance: BISACODYL
     Dosage: UNK
     Route: 065
  230. BISACODYL [Suspect]
     Active Substance: BISACODYL
     Dosage: 1 DOSAGE FORM
     Route: 065
  231. BISACODYL [Suspect]
     Active Substance: BISACODYL
     Dosage: 2 DOSAGE FORM
     Route: 065
  232. CAFFEINE [Suspect]
     Active Substance: CAFFEINE
     Indication: Product used for unknown indication
     Dosage: UNK
     Route: 065
  233. CALCIUM CARBONATE [Suspect]
     Active Substance: CALCIUM CARBONATE
     Indication: Product used for unknown indication
     Dosage: UNK
     Route: 065
  234. CYCLOBENZAPRINE [Suspect]
     Active Substance: CYCLOBENZAPRINE
     Indication: Fibromyalgia
     Dosage: 5 MG, TID
     Route: 065
  235. CYCLOBENZAPRINE [Suspect]
     Active Substance: CYCLOBENZAPRINE
     Indication: Pain
     Dosage: 5 MG, BID
     Route: 065
  236. CYCLOBENZAPRINE [Suspect]
     Active Substance: CYCLOBENZAPRINE
     Indication: Seizure prophylaxis
     Dosage: 1.67 MG, TID (3 EVERY 3 DAYS)
     Route: 065
  237. CYCLOBENZAPRINE [Suspect]
     Active Substance: CYCLOBENZAPRINE
     Indication: Seizure
     Dosage: 5 MG, QD
     Route: 065
  238. CYCLOBENZAPRINE [Suspect]
     Active Substance: CYCLOBENZAPRINE
     Dosage: 1.87 MG, QD
     Route: 065
  239. CYCLOBENZAPRINE [Suspect]
     Active Substance: CYCLOBENZAPRINE
     Dosage: UNK
     Route: 065
  240. CYCLOBENZAPRINE [Suspect]
     Active Substance: CYCLOBENZAPRINE
     Dosage: 1.87 MG, TID
     Route: 065
  241. CYCLOBENZAPRINE [Suspect]
     Active Substance: CYCLOBENZAPRINE
     Dosage: 100 MG, BID
     Route: 065
  242. CYCLOBENZAPRINE [Suspect]
     Active Substance: CYCLOBENZAPRINE
     Dosage: 200 MG, BID
     Route: 065
  243. CYCLOBENZAPRINE [Suspect]
     Active Substance: CYCLOBENZAPRINE
     Dosage: 5 MG, Q12H
     Route: 065
  244. CYCLOBENZAPRINE HYDROCHLORIDE [Suspect]
     Active Substance: CYCLOBENZAPRINE HYDROCHLORIDE
     Indication: Pain
     Dosage: 15 MG, TID
     Route: 065
  245. CYCLOBENZAPRINE HYDROCHLORIDE [Suspect]
     Active Substance: CYCLOBENZAPRINE HYDROCHLORIDE
     Indication: Fibromyalgia
     Dosage: 5 MG, QD
     Route: 065
  246. CYCLOBENZAPRINE HYDROCHLORIDE [Suspect]
     Active Substance: CYCLOBENZAPRINE HYDROCHLORIDE
     Dosage: 5 MG, Q12H
     Route: 065
  247. CYCLOBENZAPRINE HYDROCHLORIDE [Suspect]
     Active Substance: CYCLOBENZAPRINE HYDROCHLORIDE
     Dosage: 5 MG, Q8H
     Route: 065
  248. CYCLOBENZAPRINE HYDROCHLORIDE [Suspect]
     Active Substance: CYCLOBENZAPRINE HYDROCHLORIDE
     Dosage: 1.87 MG, QD
     Route: 065
  249. GLUCOSAMINE [Suspect]
     Active Substance: GLUCOSAMINE
     Indication: Pain
     Dosage: UNK
     Route: 065
  250. GLUCOSAMINE [Suspect]
     Active Substance: GLUCOSAMINE
     Indication: Arthritis
     Dosage: 500 MG, BID
     Route: 065
  251. GLUCOSAMINE [Suspect]
     Active Substance: GLUCOSAMINE
     Dosage: 1000 MG
     Route: 065
  252. GLUCOSAMINE [Suspect]
     Active Substance: GLUCOSAMINE
     Dosage: 500 MG
     Route: 065
  253. GLUCOSAMINE [Suspect]
     Active Substance: GLUCOSAMINE
     Dosage: 2500 MG
     Route: 065
  254. GLUCOSAMINE [Suspect]
     Active Substance: GLUCOSAMINE
     Dosage: 250 MG
     Route: 065
  255. GLUCOSAMINE [Suspect]
     Active Substance: GLUCOSAMINE
     Dosage: 500 MG, QD
     Route: 065
  256. GLUCOSAMINE [Suspect]
     Active Substance: GLUCOSAMINE
     Dosage: 250 MG, BID
     Route: 065
  257. GLUCOSAMINE [Suspect]
     Active Substance: GLUCOSAMINE
     Dosage: 1000 MG, QD
     Route: 065
  258. GLUCOSAMINE [Suspect]
     Active Substance: GLUCOSAMINE
     Dosage: 500 MG, Q12H
     Route: 065
  259. GALANTAMINE HYDROBROMIDE [Suspect]
     Active Substance: GALANTAMINE HYDROBROMIDE
     Indication: Dementia
     Dosage: UNK
     Route: 065
  260. GALANTAMINE HYDROBROMIDE [Suspect]
     Active Substance: GALANTAMINE HYDROBROMIDE
     Dosage: 16 MG, QD
     Route: 065
  261. GLUCOSAMINE SULFATE [Suspect]
     Active Substance: GLUCOSAMINE SULFATE
     Indication: Pain
     Dosage: 500 MG, CYCLICAL
     Route: 065
  262. GLUCOSAMINE SULFATE [Suspect]
     Active Substance: GLUCOSAMINE SULFATE
     Indication: Arthritis
     Dosage: UNK
     Route: 065
  263. GLYCERIN\LECITHIN\SOYBEAN OIL [Suspect]
     Active Substance: GLYCERIN\LECITHIN\SOYBEAN OIL
     Indication: Product used for unknown indication
     Dosage: UNK
     Route: 065
  264. GUAIFENESIN [Suspect]
     Active Substance: GUAIFENESIN
     Indication: Hypertension
     Dosage: 0.4 MG, QD (THERAPY DURATION: 1 DAY)
     Route: 065
  265. GUAIFENESIN [Suspect]
     Active Substance: GUAIFENESIN
     Indication: Chest pain
     Dosage: 1 DOSAGE FORM, QD
     Route: 065
  266. GUAIFENESIN [Suspect]
     Active Substance: GUAIFENESIN
     Indication: Angina pectoris
     Dosage: 1 DOSAGE FORM, QD
     Route: 065
  267. GUAIFENESIN [Suspect]
     Active Substance: GUAIFENESIN
     Indication: Coronary artery disease
     Dosage: UNK
     Route: 065
  268. GUAIFENESIN [Suspect]
     Active Substance: GUAIFENESIN
     Dosage: 0.4 MG
     Route: 065
  269. GUAIFENESIN [Suspect]
     Active Substance: GUAIFENESIN
     Dosage: 1 DOSAGE FORM
     Route: 065
  270. GUAIFENESIN [Suspect]
     Active Substance: GUAIFENESIN
     Dosage: 6 MG
     Route: 061
  271. GUAIFENESIN [Suspect]
     Active Substance: GUAIFENESIN
     Dosage: 0.6 MG
     Route: 065
  272. GUAIFENESIN [Suspect]
     Active Substance: GUAIFENESIN
     Dosage: 20 MG
     Route: 065
  273. GUAIFENESIN [Suspect]
     Active Substance: GUAIFENESIN
     Dosage: 6 MG QD
     Route: 061
  274. LEVOTHYROXINE SODIUM [Suspect]
     Active Substance: LEVOTHYROXINE SODIUM
     Indication: Thyroid disorder
     Dosage: 622 MG, BID
     Route: 065
  275. LEVOTHYROXINE SODIUM [Suspect]
     Active Substance: LEVOTHYROXINE SODIUM
     Indication: Radioactive iodine therapy
     Dosage: 0.088 MG, QD
     Route: 048
  276. LEVOTHYROXINE SODIUM [Suspect]
     Active Substance: LEVOTHYROXINE SODIUM
     Dosage: UNK
     Route: 065
  277. LEVOTHYROXINE SODIUM [Suspect]
     Active Substance: LEVOTHYROXINE SODIUM
     Dosage: 0.09 MG
     Route: 065
  278. LEVOTHYROXINE SODIUM [Suspect]
     Active Substance: LEVOTHYROXINE SODIUM
     Dosage: 88 MG
     Route: 065
  279. LEVOTHYROXINE SODIUM [Suspect]
     Active Substance: LEVOTHYROXINE SODIUM
     Dosage: 0.88 MG, QD
     Route: 048
  280. LEVOTHYROXINE SODIUM [Suspect]
     Active Substance: LEVOTHYROXINE SODIUM
     Dosage: 0.8 MG, QD
     Route: 065
  281. OXCARBAZEPINE [Suspect]
     Active Substance: OXCARBAZEPINE
     Indication: Product used for unknown indication
     Dosage: UNK
     Route: 065
  282. PERSANTINE [Suspect]
     Active Substance: DIPYRIDAMOLE
     Indication: Product used for unknown indication
     Dosage: 1 DOSAGE FORM, BID
     Route: 065
  283. CRANBERRY [Suspect]
     Active Substance: CRANBERRY
     Indication: Bladder disorder
     Dosage: UNK
     Route: 065
  284. CRANBERRY [Suspect]
     Active Substance: CRANBERRY
     Dosage: 500 MG, TID
     Route: 065
  285. CRANBERRY [Suspect]
     Active Substance: CRANBERRY
     Dosage: UNK
     Route: 065
  286. CRANBERRY [Suspect]
     Active Substance: CRANBERRY
     Dosage: 1500 MG, TID
     Route: 065
  287. CRANBERRY [Suspect]
     Active Substance: CRANBERRY
     Dosage: 500 MG, TID
     Route: 065
  288. ACETAMINOPHEN AND CODEINE [Suspect]
     Active Substance: ACETAMINOPHEN\CODEINE PHOSPHATE
     Indication: Product used for unknown indication
     Dosage: UNK (FORMULATION: ELIXIR)
     Route: 065
  289. POLYSORBATE 85 [Suspect]
     Active Substance: POLYSORBATE 85
     Indication: Insomnia
     Dosage: UNK
     Route: 065
  290. TIOTROPIUM BROMIDE [Suspect]
     Active Substance: TIOTROPIUM BROMIDE
     Indication: Product used for unknown indication
     Dosage: 18 MG
     Route: 065
  291. SPIRIVA [Suspect]
     Active Substance: TIOTROPIUM BROMIDE MONOHYDRATE
     Indication: Constipation
     Dosage: 18 UG, QD
     Route: 065
  292. SPIRIVA [Suspect]
     Active Substance: TIOTROPIUM BROMIDE MONOHYDRATE
     Indication: Chronic obstructive pulmonary disease
     Dosage: 18 MG, QD
     Route: 065
  293. SPIRIVA [Suspect]
     Active Substance: TIOTROPIUM BROMIDE MONOHYDRATE
     Dosage: 18 UG, QD
  294. SPIRIVA [Suspect]
     Active Substance: TIOTROPIUM BROMIDE MONOHYDRATE
     Dosage: UNK
     Route: 065
  295. QUINAPRIL HYDROCHLORIDE [Suspect]
     Active Substance: QUINAPRIL HYDROCHLORIDE
     Indication: Seizure prophylaxis
     Dosage: 40 MG, QD, FILM COATED TABLET
     Route: 065
  296. QUINAPRIL HYDROCHLORIDE [Suspect]
     Active Substance: QUINAPRIL HYDROCHLORIDE
     Indication: Seizure
     Dosage: UNK, TABLET
     Route: 065
  297. QUINAPRIL HYDROCHLORIDE [Suspect]
     Active Substance: QUINAPRIL HYDROCHLORIDE
     Indication: Pain
     Dosage: 20 MG, QD, FILM-COATED TABLET
     Route: 065
  298. QUINAPRIL HYDROCHLORIDE [Suspect]
     Active Substance: QUINAPRIL HYDROCHLORIDE
     Indication: Insomnia
     Dosage: 20 MG, QD
     Route: 065
  299. QUINAPRIL HYDROCHLORIDE [Suspect]
     Active Substance: QUINAPRIL HYDROCHLORIDE
     Indication: Hypertension
     Dosage: 40 MG, QD, FILM COATED TABLET
     Route: 065
  300. QUINAPRIL HYDROCHLORIDE [Suspect]
     Active Substance: QUINAPRIL HYDROCHLORIDE
     Indication: Fibromyalgia
     Dosage: 40 MG, QD, TABLET
     Route: 065
  301. QUINAPRIL HYDROCHLORIDE [Suspect]
     Active Substance: QUINAPRIL HYDROCHLORIDE
     Indication: Coronary artery disease
     Dosage: 40 MG, QD, FILM COATED TABLET
     Route: 065
  302. QUINAPRIL HYDROCHLORIDE [Suspect]
     Active Substance: QUINAPRIL HYDROCHLORIDE
     Indication: Chest pain
     Dosage: 20 MG, QD, FILM COATED TABLET
     Route: 065
  303. QUINAPRIL HYDROCHLORIDE [Suspect]
     Active Substance: QUINAPRIL HYDROCHLORIDE
     Indication: Cerebrovascular accident
     Dosage: 20 MG, QD, FILM COATED TABLET
     Route: 065
  304. QUINAPRIL HYDROCHLORIDE [Suspect]
     Active Substance: QUINAPRIL HYDROCHLORIDE
     Indication: Angina pectoris
     Dosage: 40 MG, QD, FILM COATED TABLET
     Route: 065
  305. QUINAPRIL HYDROCHLORIDE [Suspect]
     Active Substance: QUINAPRIL HYDROCHLORIDE
     Dosage: UNK, FILM COATED TABLET
     Route: 065
  306. QUINAPRIL HYDROCHLORIDE [Suspect]
     Active Substance: QUINAPRIL HYDROCHLORIDE
     Dosage: 800 MG, QD, FILM COATED TABLET
     Route: 065
  307. POTASSIUM SORBATE [Suspect]
     Active Substance: POTASSIUM SORBATE
     Indication: Product used for unknown indication
     Dosage: UNK
     Route: 065
  308. LEVOFLOXACIN HEMIHYDRATE [Suspect]
     Active Substance: LEVOFLOXACIN
     Indication: Urinary tract infection
     Dosage: 250 MG
     Route: 065
  309. LEVOFLOXACIN HEMIHYDRATE [Suspect]
     Active Substance: LEVOFLOXACIN
     Indication: Thyroid disorder
     Dosage: 15 MG
     Route: 065
  310. LEVOFLOXACIN HEMIHYDRATE [Suspect]
     Active Substance: LEVOFLOXACIN
     Indication: Radioactive iodine therapy
     Dosage: 200 MG, QD
     Route: 065
  311. LEVOFLOXACIN HEMIHYDRATE [Suspect]
     Active Substance: LEVOFLOXACIN
     Dosage: 250 MG, QD
     Route: 065
  312. AMITRIPTYLINE HYDROCHLORIDE [Suspect]
     Active Substance: AMITRIPTYLINE HYDROCHLORIDE
     Indication: Insomnia
     Dosage: 75 MG, QD
     Route: 065
  313. PERPHENAZINE [Suspect]
     Active Substance: PERPHENAZINE
     Indication: Insomnia
     Dosage: 75 MG, QD
     Route: 065
  314. PHENOLPHTHALEIN [Suspect]
     Active Substance: PHENOLPHTHALEIN
     Indication: Pain
     Dosage: UNK
     Route: 065
  315. SALICYLAMIDE [Suspect]
     Active Substance: SALICYLAMIDE
     Indication: Pain
     Dosage: UNK
     Route: 065
  316. ACEBUTOLOL [Suspect]
     Active Substance: ACEBUTOLOL
     Indication: Product used for unknown indication
     Dosage: UNK
     Route: 065
  317. DULCOLAX (BISACODYL) [Suspect]
     Active Substance: BISACODYL
     Indication: Constipation
     Dosage: UNK,QD
     Route: 048
  318. CHONDROITIN SULFATE (BOVINE)\GLUCOSAMINE [Suspect]
     Active Substance: CHONDROITIN SULFATE (BOVINE)\GLUCOSAMINE SULFATE
     Indication: Product used for unknown indication
     Dosage: 2500 MG, QD
     Route: 065
  319. GLYCERIN [Suspect]
     Active Substance: GLYCERIN
     Indication: Product used for unknown indication
     Dosage: UNK
     Route: 065
  320. ANHYDROUS CITRIC ACID\MAGNESIUM OXIDE\SODIUM PICOSULFATE [Suspect]
     Active Substance: ANHYDROUS CITRIC ACID\MAGNESIUM OXIDE\SODIUM PICOSULFATE
     Indication: Constipation
     Dosage: UNK (1 EVERY 5 DAYS)
     Route: 065
  321. POLYSORBATE 40 [Suspect]
     Active Substance: POLYSORBATE 40
     Indication: Insomnia
     Dosage: UNK
     Route: 065
  322. AMITRIPTYLINE HYDROCHLORIDE\PERPHENAZINE [Suspect]
     Active Substance: AMITRIPTYLINE HYDROCHLORIDE\PERPHENAZINE
     Indication: Insomnia
     Dosage: 75 MG, QD
     Route: 065
  323. AMITRIPTYLINE HYDROCHLORIDE\PERPHENAZINE [Suspect]
     Active Substance: AMITRIPTYLINE HYDROCHLORIDE\PERPHENAZINE
     Dosage: 50 MG, QD
     Route: 065
  324. MAGNESIUM CARBONATE [Suspect]
     Active Substance: MAGNESIUM CARBONATE
     Indication: Constipation
     Dosage: 622 MG, Q12H
     Route: 065
  325. MAGNESIUM CARBONATE [Suspect]
     Active Substance: MAGNESIUM CARBONATE
     Dosage: UNK
     Route: 065
  326. OMEPRAZOLE MAGNESIUM [Suspect]
     Active Substance: OMEPRAZOLE MAGNESIUM
     Indication: Duodenal ulcer
     Dosage: 40 MG, QD
     Route: 065
  327. OMEPRAZOLE MAGNESIUM [Suspect]
     Active Substance: OMEPRAZOLE MAGNESIUM
     Dosage: 20 MG, QD
     Route: 065
  328. OMEPRAZOLE MAGNESIUM [Suspect]
     Active Substance: OMEPRAZOLE MAGNESIUM
     Dosage: UNK
     Route: 065
  329. OXYMORPHONE HYDROCHLORIDE [Suspect]
     Active Substance: OXYMORPHONE HYDROCHLORIDE
     Indication: Product used for unknown indication
     Dosage: UNK
     Route: 065
  330. TIOTROPIUM BROMIDE MONOHYDRATE [Suspect]
     Active Substance: TIOTROPIUM BROMIDE MONOHYDRATE
     Indication: Chronic obstructive pulmonary disease
     Dosage: 18 MG, QD
     Route: 065
  331. TIOTROPIUM BROMIDE MONOHYDRATE [Suspect]
     Active Substance: TIOTROPIUM BROMIDE MONOHYDRATE
     Dosage: UNK
     Route: 065
  332. ZINC [Suspect]
     Active Substance: ZINC
     Indication: Product used for unknown indication
     Dosage: UNK
     Route: 065
  333. ALBUTEROL SULFATE [Concomitant]
     Active Substance: ALBUTEROL SULFATE
     Indication: Product used for unknown indication
     Dosage: UNK
     Route: 065
  334. PHOSPHORIC ACID [Concomitant]
     Active Substance: PHOSPHORIC ACID
     Indication: Product used for unknown indication
     Dosage: UNK
     Route: 065
  335. CALCIUM POLYCARBOPHIL [Concomitant]
     Active Substance: CALCIUM POLYCARBOPHIL
     Indication: Product used for unknown indication
     Dosage: UNK
     Route: 065
  336. POTASSIUM [Concomitant]
     Active Substance: POTASSIUM
     Indication: Product used for unknown indication
     Dosage: UNK
     Route: 065
  337. SODIUM BENZOATE [Concomitant]
     Active Substance: SODIUM BENZOATE
     Indication: Product used for unknown indication
     Dosage: UNK
     Route: 065
  338. CRANBERRY [Concomitant]
     Active Substance: CRANBERRY
     Indication: Product used for unknown indication
     Dosage: UNK
     Route: 065
  339. HERBALS\PLANTAGO OVATA SEED COAT [Concomitant]
     Active Substance: HERBALS\PLANTAGO OVATA SEED COAT
     Indication: Product used for unknown indication
     Dosage: UNK
     Route: 065
  340. CRANBERRY + C [Concomitant]
     Indication: Product used for unknown indication
     Dosage: UNK
     Route: 065
  341. VITAMIN C [Concomitant]
     Active Substance: ASCORBIC ACID
     Indication: Product used for unknown indication
     Dosage: UNK
     Route: 065
  342. ASPIRIN [Concomitant]
     Active Substance: ASPIRIN
     Indication: Product used for unknown indication
     Dosage: UNK
     Route: 065
  343. ASPIRIN [Concomitant]
     Active Substance: ASPIRIN
     Indication: Product used for unknown indication
     Dosage: UNK
     Route: 065
  344. VACCINIUM MACROCARPON;ZINC [Concomitant]
     Indication: Product used for unknown indication
     Dosage: UNK
     Route: 065
  345. PYROPHOSPHORIC ACID [Concomitant]
     Active Substance: PYROPHOSPHORIC ACID
     Indication: Product used for unknown indication
     Dosage: UNK
     Route: 065
  346. ZINC [Concomitant]
     Active Substance: ZINC
     Indication: Product used for unknown indication
     Dosage: UNK
     Route: 065

REACTIONS (32)
  - Balance disorder [Recovered/Resolved]
  - Blood calcium decreased [Recovered/Resolved]
  - Cognitive disorder [Recovered/Resolved]
  - Constipation [Recovered/Resolved]
  - Creatinine renal clearance decreased [Recovered/Resolved]
  - Depressed level of consciousness [Recovered/Resolved]
  - Fall [Recovered/Resolved]
  - Hypotension [Recovered/Resolved]
  - Mobility decreased [Recovered/Resolved]
  - Orthostatic hypotension [Recovered/Resolved]
  - Pain [Recovered/Resolved]
  - Sedation [Recovered/Resolved]
  - Sedation complication [Recovered/Resolved]
  - Toxicity to various agents [Recovered/Resolved]
  - Balance disorder [Recovered/Resolved]
  - Blood calcium decreased [Recovered/Resolved]
  - Cognitive disorder [Recovered/Resolved]
  - Constipation [Recovered/Resolved]
  - Creatinine renal clearance decreased [Recovered/Resolved]
  - Depressed level of consciousness [Recovered/Resolved]
  - Fall [Recovered/Resolved]
  - Hypotension [Recovered/Resolved]
  - Mobility decreased [Recovered/Resolved]
  - Orthostatic hypotension [Recovered/Resolved]
  - Pain [Recovered/Resolved]
  - Sedation [Recovered/Resolved]
  - Sedation complication [Recovered/Resolved]
  - Toxicity to various agents [Recovered/Resolved]
  - Overdose [Recovered/Resolved]
  - Drug abuse [Recovered/Resolved]
  - Product use in unapproved indication [Recovered/Resolved]
  - Off label use [Recovered/Resolved]
